FAERS Safety Report 23907323 (Version 1)
Quarter: 2024Q2

REPORT INFORMATION
  Report Type: Spontaneous
  Country: CN (occurrence: CN)
  Receive Date: 20240528
  Receipt Date: 20240528
  Transmission Date: 20240716
  Serious: Yes (Hospitalization)
  Sender: FDA-Public Use
  Company Number: CN-002147023-NVSC2024CN109870

PATIENT
  Age: 62 Year
  Sex: Male
  Weight: 71 kg

DRUGS (2)
  1. IMATINIB MESYLATE [Suspect]
     Active Substance: IMATINIB MESYLATE
     Indication: Gastrointestinal stromal tumour
     Dosage: 3 DOSAGE FORM, QD (0.3 G QD) (TO TAKE IT WITH LUNCH AND DRINK A LARGE GLASS OF WATER)
     Route: 048
     Dates: start: 20240224, end: 20240507
  2. IMATINIB MESYLATE [Suspect]
     Active Substance: IMATINIB MESYLATE
     Dosage: 2 DOSAGE FORM, QD (2 TABLETS/DAY) (WITH LUNCH)
     Route: 065
     Dates: start: 20240507

REACTIONS (2)
  - Pain [Recovering/Resolving]
  - Sleep disorder [Recovering/Resolving]

NARRATIVE: CASE EVENT DATE: 20240430
